FAERS Safety Report 19485340 (Version 1)
Quarter: 2021Q3

REPORT INFORMATION
  Report Type: Spontaneous
  Country: US (occurrence: US)
  Receive Date: 20210701
  Receipt Date: 20210701
  Transmission Date: 20211014
  Serious: Yes (Other)
  Sender: FDA-Public Use
  Company Number: US-DRREDDYS-SPO/USA/21/0137166

PATIENT
  Age: 16 Year
  Sex: Female

DRUGS (2)
  1. ZENATANE [Suspect]
     Active Substance: ISOTRETINOIN
     Indication: PRODUCT USED FOR UNKNOWN INDICATION
     Dosage: RMA ISSUE DATE:3/24/2021 1:42:16 PM, 4/21/2021 2:34:47 PM, 5/25/2021 1:34:09 PM
  2. ZENATANE [Suspect]
     Active Substance: ISOTRETINOIN
     Dosage: RMA ISSUE DATE:3/24/2021 1:46:53 PM, 4/21/2021 2:34:29 PM, 5/25/2021 1:31:32 PM

REACTIONS (2)
  - Mood altered [Unknown]
  - Emotional disorder [Unknown]
